FAERS Safety Report 22177710 (Version 1)
Quarter: 2023Q2

REPORT INFORMATION
  Report Type: Spontaneous
  Country: BE (occurrence: BE)
  Receive Date: 20230405
  Receipt Date: 20230405
  Transmission Date: 20230722
  Serious: Yes (Death, Other)
  Sender: FDA-Public Use
  Company Number: BE-AMGEN-BELSP2023056013

PATIENT

DRUGS (3)
  1. TRASTUZUMAB [Suspect]
     Active Substance: TRASTUZUMAB
     Indication: Breast cancer metastatic
     Dosage: UNK
     Route: 065
  2. FULVESTRANT [Concomitant]
     Active Substance: FULVESTRANT
     Indication: Breast cancer metastatic
     Dosage: UNK
     Route: 065
  3. CH-5132799 MESYLATE [Concomitant]
     Active Substance: CH-5132799 MESYLATE
     Indication: Breast cancer metastatic
     Dosage: UNK
     Route: 065

REACTIONS (18)
  - Death [Fatal]
  - Ketoacidosis [Unknown]
  - Pneumonitis [Unknown]
  - Lipase increased [Unknown]
  - Hyperglycaemia [Unknown]
  - Aspartate aminotransferase increased [Unknown]
  - Generalised oedema [Unknown]
  - Therapy partial responder [Unknown]
  - General physical health deterioration [Unknown]
  - Anaemia [Unknown]
  - Diarrhoea [Unknown]
  - Asthenia [Unknown]
  - Decreased appetite [Unknown]
  - Stomatitis [Unknown]
  - Rash [Unknown]
  - Nausea [Unknown]
  - Vomiting [Unknown]
  - Pyrexia [Unknown]
